FAERS Safety Report 8767487 (Version 1)
Quarter: 2012Q4

REPORT INFORMATION
  Report Type: 
  Country: US (occurrence: US)
  Receive Date: 20120904
  Receipt Date: 20120904
  Transmission Date: 20130627
  Serious: No
  Sender: FDA-Public Use
  Company Number: US-B.I. PHARMACEUTICALS,INC./RIDGEFIELD-2012-BP-20941BP

PATIENT
  Sex: Female

DRUGS (3)
  1. ZANTAC COOL MINT (TABLETS) [Suspect]
     Indication: DYSPEPSIA
     Dosage: 300 mg
     Route: 048
     Dates: start: 20120827
  2. GABAPENTIN [Concomitant]
     Indication: BACK PAIN
     Dates: start: 201204
  3. BLOOD PRESSURE MEDICATION [Concomitant]

REACTIONS (1)
  - Dyspepsia [Not Recovered/Not Resolved]
